FAERS Safety Report 10682081 (Version 2)
Quarter: 2015Q1

REPORT INFORMATION
  Report Type: Spontaneous
  Country: US (occurrence: US)
  Receive Date: 20141230
  Receipt Date: 20150113
  Transmission Date: 20150720
  Serious: No
  Sender: FDA-Public Use
  Company Number: US-PFIZER INC-2014357574

PATIENT
  Age: 65 Year
  Sex: Male
  Weight: 79.37 kg

DRUGS (10)
  1. HYDROCODONE-IBUPROFEN [Concomitant]
     Dosage: HYDROCODONE 7.5MG/IBUPROFEN 200MG, 1X/DAY
  2. LISINOP-HCTZ [Concomitant]
     Active Substance: HYDROCHLOROTHIAZIDE\LISINOPRIL
     Indication: CARDIAC DISORDER
  3. XARELTO [Concomitant]
     Active Substance: RIVAROXABAN
     Indication: CEREBROVASCULAR ACCIDENT
  4. CARVEDILOL. [Concomitant]
     Active Substance: CARVEDILOL
     Dosage: (25 MG OR 6.5MG), 2X/DAY
  5. LYRICA [Suspect]
     Active Substance: PREGABALIN
     Indication: PAIN
     Dosage: 50 MG, 2X/DAY
     Route: 048
  6. GLYBURIDE. [Concomitant]
     Active Substance: GLYBURIDE
     Dosage: 5 MG, 1X/DAY
  7. LISINOP-HCTZ [Concomitant]
     Active Substance: HYDROCHLOROTHIAZIDE\LISINOPRIL
     Indication: DIURETIC THERAPY
     Dosage: 20-12.5 ONE, TWICE DAILY
  8. LANTUS [Concomitant]
     Active Substance: INSULIN GLARGINE
     Dosage: 36 IU, 1X/DAY (EVERY EVENING)
  9. XARELTO [Concomitant]
     Active Substance: RIVAROXABAN
     Indication: ATRIAL FIBRILLATION
     Dosage: 20 MG, 1X/DAY IN THE EVENING
  10. GEMFIBROZIL. [Concomitant]
     Active Substance: GEMFIBROZIL
     Indication: BLOOD CHOLESTEROL ABNORMAL
     Dosage: 600 MG, 2X/DAY
     Route: 048

REACTIONS (3)
  - Feeling abnormal [Not Recovered/Not Resolved]
  - Neuralgia [Unknown]
  - Pain [Unknown]
